FAERS Safety Report 7967687-8 (Version None)
Quarter: 2011Q4

REPORT INFORMATION
  Report Type: 
  Country: None (occurrence: None)
  Receive Date: 20111207
  Receipt Date: 20111122
  Transmission Date: 20120403
  Serious: Yes (Hospitalization)
  Sender: FDA-Public Use
  Company Number: 1000025847

PATIENT
  Age: 60 Year
  Sex: Male
  Weight: 115 kg

DRUGS (6)
  1. HIROBRIZ (HIROBRIZ) [Concomitant]
  2. BLOPRESS 32 (PLUS (CANDESARTAN) [Concomitant]
  3. ROFLUMILAST (ROFLUMILAST) (TABLETS) [Suspect]
     Indication: CHRONIC OBSTRUCTIVE PULMONARY DISEASE
     Dosage: 500 MCG, ORAL
     Route: 048
     Dates: start: 20110315, end: 20110401
  4. BUDESONIDE [Concomitant]
  5. DILTIAGAMMA (DILTIAZEM HYDROCHLORIDE) [Concomitant]
  6. SPIRIVA [Concomitant]

REACTIONS (4)
  - DIZZINESS [None]
  - HYPERTENSION [None]
  - HEADACHE [None]
  - MUSCLE SPASMS [None]
